FAERS Safety Report 9803741 (Version 1)
Quarter: 2014Q1

REPORT INFORMATION
  Report Type: Spontaneous
  Country: US (occurrence: US)
  Receive Date: 20140108
  Receipt Date: 20140108
  Transmission Date: 20141002
  Serious: No
  Sender: FDA-Public Use
  Company Number: US-GLAXOSMITHKLINE-A1029269A

PATIENT
  Age: 52 Year
  Sex: Male

DRUGS (14)
  1. LOVAZA [Suspect]
     Indication: BLOOD TRIGLYCERIDES INCREASED
     Dosage: 2CAP TWICE PER DAY
     Route: 048
     Dates: start: 201207
  2. SOMA [Concomitant]
  3. HYDROCODONE [Concomitant]
  4. NORTRIPTYLINE [Concomitant]
  5. MICARDIS [Concomitant]
  6. POTASSIUM CITRATE [Concomitant]
  7. HCTZ [Concomitant]
  8. GLYBURIDE [Concomitant]
  9. AMLODIPINE [Concomitant]
  10. HERBAL SUPPLEMENTS [Concomitant]
  11. CALCITRATE WITH VITAMIN D [Concomitant]
  12. CINNAMON [Concomitant]
  13. OSTEOBIFLEX [Concomitant]
  14. MVI [Concomitant]

REACTIONS (1)
  - Ageusia [Not Recovered/Not Resolved]
